FAERS Safety Report 5176883-7 (Version None)
Quarter: 2006Q4

REPORT INFORMATION
  Report Type: 
  Country: None (occurrence: None)
  Receive Date: 20061218
  Receipt Date: 20061206
  Transmission Date: 20070319
  Serious: Yes (Other)
  Sender: FDA-Public Use
  Company Number: PHRM2006FR03253

PATIENT
  Age: 62 Year
  Sex: Male
  Weight: 80 kg

DRUGS (2)
  1. ALDACTAZINE [Concomitant]
     Route: 048
  2. VOLTARENE LP [Suspect]
     Indication: EAR PAIN
     Dosage: 100 MG, QD
     Route: 048
     Dates: start: 20061124, end: 20061125

REACTIONS (5)
  - DIZZINESS [None]
  - FALL [None]
  - HAEMATOMA [None]
  - LOSS OF CONSCIOUSNESS [None]
  - MUSCULOSKELETAL CHEST PAIN [None]
